FAERS Safety Report 11122903 (Version 6)
Quarter: 2016Q2

REPORT INFORMATION
  Report Type: Spontaneous
  Country: US (occurrence: US)
  Receive Date: 20150519
  Receipt Date: 20160405
  Transmission Date: 20160815
  Serious: Yes (Hospitalization, Other)
  Sender: FDA-Public Use
  Company Number: US-PFIZER INC-2015165338

PATIENT
  Age: 68 Year
  Sex: Female
  Weight: 120 kg

DRUGS (53)
  1. HYDRODIURIL [Concomitant]
     Active Substance: HYDROCHLOROTHIAZIDE
     Dosage: 12.5 MG, DAILY
     Route: 048
  2. ZYLOPRIM [Concomitant]
     Active Substance: ALLOPURINOL
     Dosage: 100 MG, 1X/DAY
     Route: 048
  3. CARVEDILOL. [Concomitant]
     Active Substance: CARVEDILOL
     Indication: CARDIAC DISORDER
     Dosage: 3.125 MG, 2X/DAY
     Route: 048
     Dates: start: 20151210
  4. COREG [Concomitant]
     Active Substance: CARVEDILOL
     Dosage: 3.125 MG, 2X/DAY
     Route: 048
  5. FLECTOR [Concomitant]
     Active Substance: DICLOFENAC EPOLAMINE
     Indication: PAIN
     Dosage: UNK, 2X/DAY (PLACE IN PATCH ON TO SKIN)
     Route: 061
  6. PHENERGAN [Concomitant]
     Active Substance: PROMETHAZINE HYDROCHLORIDE
     Dosage: UNK (6.25 MG/5 ML)
  7. METRONIDAZOLE. [Concomitant]
     Active Substance: METRONIDAZOLE
     Dosage: UNK
     Route: 061
  8. NOVOLOG [Concomitant]
     Active Substance: INSULIN ASPART
     Dosage: UNK (ONE SUBCUTANEOUS INJECTION WITH MEALS, STARTING AT 20UNITS; USUALLY USES 50 UNITS)
     Route: 058
     Dates: start: 1993
  9. FERROUS SULFATE. [Concomitant]
     Active Substance: FERROUS SULFATE
     Dosage: UNK, WEEKLY
  10. LYRICA [Suspect]
     Active Substance: PREGABALIN
     Indication: DIABETIC NEUROPATHY
     Dosage: 50 MG, 2X/DAY
     Route: 048
  11. LIDEX [Concomitant]
     Active Substance: FLUOCINONIDE
     Dosage: 0.05 %, 2X/DAY
     Route: 061
  12. APRISO [Concomitant]
     Active Substance: MESALAMINE
     Indication: CROHN^S DISEASE
     Dosage: 0.375 G, 4X/DAY (2 CAPSULES)
     Route: 048
  13. BACTROBAN [Concomitant]
     Active Substance: MUPIROCIN\MUPIROCIN CALCIUM
     Dosage: UNK, AS NEEDED (APPLY TOPICALLY 3 TIMES DAILY)
     Route: 061
  14. LANTUS [Concomitant]
     Active Substance: INSULIN GLARGINE
     Indication: DIABETES MELLITUS
     Dosage: 80 IU, 2X/DAY (80UNITS ONE SUBCUTANEOUS INJECTION IN THE MORNING AND ONE INJECTION AT NIGHT)
     Route: 058
     Dates: start: 1993
  15. ALLOPURINOL. [Concomitant]
     Active Substance: ALLOPURINOL
     Indication: GOUT
     Dosage: 100 MG, 1X/DAY
     Route: 048
  16. HYDROCHLOROT [Concomitant]
     Active Substance: HYDROCHLOROTHIAZIDE
     Indication: HYPERTENSION
     Dosage: 12.5 MG, 1X/DAY
     Route: 048
     Dates: start: 201505
  17. MUPIROCIN. [Concomitant]
     Active Substance: MUPIROCIN
     Indication: SKIN DISORDER
     Dosage: UNK, DAILY (2% APPLY TO AFFECTED AREA)
  18. LYRICA [Suspect]
     Active Substance: PREGABALIN
     Indication: NEUROPATHY PERIPHERAL
     Dosage: 25 MG, 3X/DAY
     Dates: start: 2005
  19. LASIX [Concomitant]
     Active Substance: FUROSEMIDE
     Dosage: 40 MG, 2X/DAY
     Route: 048
  20. KETOPROFEN. [Concomitant]
     Active Substance: KETOPROFEN
     Dosage: UNK
  21. FUROSEMIDE. [Concomitant]
     Active Substance: FUROSEMIDE
     Indication: POLYURIA
     Dosage: 40 MG, 1X/DAY
     Route: 048
  22. LOSARTAN-HCTZ [Concomitant]
     Active Substance: HYDROCHLOROTHIAZIDE\LOSARTAN
     Indication: HYPERTENSION
     Dosage: 1 DF, DAILY (LOSARTAN-100MG -HYDROCHLOROTHIAZIDE-25 MG)
     Route: 048
  23. HYDROCORTISONE. [Concomitant]
     Active Substance: HYDROCORTISONE
     Indication: ROSACEA
     Dosage: UNK, AS NEEDED (2.5% APPLY TO FACE AND EARS AS NEEDED TAPER OFF AS DIRECTED)
  24. DOXY-CYCL HYOL [Concomitant]
     Indication: ROSACEA
     Dosage: 100 MG, 1X/DAY (FOR TEN DAYS)
     Route: 048
  25. LEVOTHYROXIN [Concomitant]
     Active Substance: LEVOTHYROXINE
     Indication: THYROID DISORDER
     Dosage: 37.5 MG, DAILY (25MG 1.5 CAPSULE A DAY)
  26. LYRICA [Suspect]
     Active Substance: PREGABALIN
     Dosage: 100 MG, 3X/DAY
  27. PROVENTIL HFA [Concomitant]
     Active Substance: ALBUTEROL SULFATE
     Indication: WHEEZING
     Dosage: UNK, AS NEEDED (INHALE 2 PUFFS INTO THE LUNGS EVERY 6 HOURS)
     Route: 045
  28. NIZORAL [Concomitant]
     Active Substance: KETOCONAZOLE
     Dosage: UNK %, UNK
     Route: 061
  29. TRIAMCINOLONE ACETONIDE. [Concomitant]
     Active Substance: TRIAMCINOLONE ACETONIDE
     Dosage: UNK %, UNK
     Route: 061
  30. LAC-HYDRIN [Concomitant]
     Active Substance: AMMONIUM LACTATE
     Dosage: UNK
     Route: 061
  31. DEXILANT [Concomitant]
     Active Substance: DEXLANSOPRAZOLE
     Indication: GASTROOESOPHAGEAL REFLUX DISEASE
     Dosage: 60 MG, DAILY
     Route: 048
  32. LEVOTHROID [Concomitant]
     Active Substance: LEVOTHYROXINE SODIUM
     Dosage: 25 UG, DAILY (1/2 TABLETS DAILY)
     Route: 048
  33. ABC PLUS SENIOR [Concomitant]
     Dosage: UNK, 1X/DAY
     Route: 048
  34. VIBRAMYCIN [Concomitant]
     Active Substance: DOXYCYCLINE
     Dosage: 100 MG, 2X/DAY
     Route: 048
  35. DUONEB [Concomitant]
     Active Substance: ALBUTEROL SULFATE\IPRATROPIUM BROMIDE
     Dosage: UNK (IPRATROPIUM BROMIDE 0.5, SALBUTAMOL SULFATE 2.5) MG/3 ML SOLN
     Route: 045
  36. VENTOLIN HFA [Concomitant]
     Active Substance: ALBUTEROL SULFATE
     Indication: WHEEZING
     Dosage: UNK, AS NEEDED (INHALE 2 PUFFS INTO THE EVERY 6 HOURS)
     Route: 045
  37. TYLENOL [Concomitant]
     Active Substance: ACETAMINOPHEN
     Dosage: 650 MG, AS NEEDED (EVERY 8 HOURS AS NEEDED)
     Route: 048
  38. TUDORZA PRESSAIR [Concomitant]
     Active Substance: ACLIDINIUM BROMIDE
     Dosage: UNK (INHALE INTO THE LUNGS)
     Route: 045
  39. ISORDIL [Concomitant]
     Active Substance: ISOSORBIDE DINITRATE
     Dosage: 10 MG, 3X/DAY
     Route: 048
  40. HYZAAR [Concomitant]
     Active Substance: HYDROCHLOROTHIAZIDE\LOSARTAN POTASSIUM
     Dosage: UNK (HYDROCHLOROTHIAZIDE  50, LOSARTAN POTASSIUM 12.5)
     Route: 048
  41. PHAZYME /06269601/ [Concomitant]
     Dosage: 180 MG, 1X/DAY (NIGHTY)
     Route: 048
  42. APRISO [Concomitant]
     Active Substance: MESALAMINE
     Dosage: 0.75 MG, 2X/DAY (TWO CAPSULES IN THE MORNING AND TWO CAPSULES IN THE EVENING)
     Dates: start: 2011
  43. LEVEMIR [Concomitant]
     Active Substance: INSULIN DETEMIR
     Dosage: 90 DF, 2X/DAY
  44. VICTOZA [Concomitant]
     Active Substance: LIRAGLUTIDE
     Indication: DIABETES MELLITUS
     Dosage: 1.8 MG, DAILY
  45. VICTOZA [Concomitant]
     Active Substance: LIRAGLUTIDE
     Dosage: 1.8 IU, 1X/DAY (INJECTION IN THE MORNING)
     Route: 058
     Dates: start: 2010
  46. FERROUS SULFATE. [Concomitant]
     Active Substance: FERROUS SULFATE
     Indication: MINERAL SUPPLEMENTATION
     Dosage: 325 MG, 1X/DAY
     Route: 048
     Dates: start: 201601
  47. KETOCONAZOLE. [Concomitant]
     Active Substance: KETOCONAZOLE
     Indication: ROSACEA
     Dosage: UNK, AS NEEDED (2.0% APPLY TO FACE AND EARS AS NEEDED TAPER OFF AS DIRECTED)
  48. FLECTOR [Concomitant]
     Active Substance: DICLOFENAC EPOLAMINE
     Dosage: 1 DF, AS NEEDED (1.3% ONE PATCH APPLIED TO A PAINFUL AREA AS NEEDED)
  49. VOLTAREN [Concomitant]
     Active Substance: DICLOFENAC SODIUM
     Dosage: 2 G, 2X/DAY
     Route: 061
  50. NIZORAL [Concomitant]
     Active Substance: KETOCONAZOLE
     Dosage: 2 UNK, UNK
     Route: 061
  51. ASPIRIN 81 [Concomitant]
     Active Substance: ASPIRIN
     Dosage: 81 MG, DAILY (AS NEEDED)
     Route: 048
  52. NOVOLOG [Concomitant]
     Active Substance: INSULIN ASPART
     Indication: DIABETES MELLITUS
     Dosage: UNK, 3X/DAY
  53. NORVASC [Concomitant]
     Active Substance: AMLODIPINE BESYLATE
     Indication: BLOOD PRESSURE INCREASED
     Dosage: 5 MG, DAILY (AS NEEDED)
     Route: 048

REACTIONS (22)
  - Renal failure [Recovered/Resolved]
  - Fluid overload [Recovered/Resolved]
  - Intentional product use issue [Unknown]
  - Fluid retention [Recovered/Resolved]
  - Cataract [Unknown]
  - Anxiety [Not Recovered/Not Resolved]
  - Tremor [Unknown]
  - Weight increased [Unknown]
  - Drug ineffective [Unknown]
  - Arteriosclerosis [Not Recovered/Not Resolved]
  - Muscle tightness [Unknown]
  - Hypoaesthesia [Unknown]
  - Blood glucose increased [Unknown]
  - Peripheral swelling [Not Recovered/Not Resolved]
  - Prescribed underdose [Unknown]
  - Insomnia [Unknown]
  - Mobility decreased [Unknown]
  - Glycosylated haemoglobin increased [Unknown]
  - Cardiovascular disorder [Recovered/Resolved]
  - Cataract [Unknown]
  - Back pain [Not Recovered/Not Resolved]
  - Condition aggravated [Unknown]

NARRATIVE: CASE EVENT DATE: 201405
